FAERS Safety Report 6449122-4 (Version None)
Quarter: 2009Q4

REPORT INFORMATION
  Report Type: 
  Country: None (occurrence: None)
  Receive Date: 20091120
  Receipt Date: 20091117
  Transmission Date: 20100525
  Serious: Yes (Other)
  Sender: FDA-Public Use
  Company Number: JP-BAYER-200912366BYL

PATIENT
  Age: 66 Year
  Sex: Female
  Weight: 55 kg

DRUGS (7)
  1. NEXAVAR [Suspect]
     Indication: HEPATIC NEOPLASM MALIGNANT
     Dosage: TOTAL DAILY DOSE: 800 MG  UNIT DOSE: 200 MG
     Route: 048
     Dates: start: 20090623, end: 20090709
  2. NORVASC [Concomitant]
     Route: 048
     Dates: start: 20070101
  3. GASTER D [Concomitant]
     Route: 048
     Dates: start: 20070101
  4. URSO 250 [Concomitant]
     Route: 048
     Dates: start: 20070101
  5. HUMALOG [Concomitant]
     Route: 058
     Dates: start: 20070101
  6. ALDACTONE [Concomitant]
     Route: 048
     Dates: start: 20080101
  7. AZULOXA [Concomitant]
     Indication: GASTRITIS PROPHYLAXIS
     Route: 048
     Dates: start: 20090709, end: 20090710

REACTIONS (5)
  - ERYTHEMA MULTIFORME [None]
  - FACE OEDEMA [None]
  - HYPERTENSION [None]
  - PLATELET COUNT DECREASED [None]
  - PYREXIA [None]
